FAERS Safety Report 8990558 (Version 1)
Quarter: 2012Q4

REPORT INFORMATION
  Report Type: 
  Country: GB (occurrence: GB)
  Receive Date: 20121228
  Receipt Date: 20121228
  Transmission Date: 20130627
  Serious: Yes (Disabling, Other)
  Sender: FDA-Public Use
  Company Number: GB-TEVA-374105ISR

PATIENT
  Age: 48 Year
  Sex: Female
  Weight: 125 kg

DRUGS (11)
  1. LAMOTRIGINE [Suspect]
     Indication: EPILEPSY
     Dosage: 200 Milligram Daily;
     Route: 048
     Dates: start: 20121115
  2. LAMOTRIGINE [Suspect]
     Dosage: 100 Milligram Daily;
     Dates: start: 20120822
  3. KEPPRA [Concomitant]
     Dates: start: 20120723
  4. TRAMADOL [Concomitant]
     Dates: start: 20120822
  5. DICYCLOVERINE HYDROCHLORIDE [Concomitant]
     Dates: start: 20120823, end: 20120920
  6. OXYTETRACYCLINE [Concomitant]
     Dates: start: 20120910, end: 20120917
  7. HYOSCINE BUTYLBROMIDE [Concomitant]
     Dates: start: 20120919, end: 20120920
  8. HYOSCINE BUTYLBROMIDE [Concomitant]
     Dates: start: 20121016, end: 20121017
  9. HYOSCINE BUTYLBROMIDE [Concomitant]
     Dates: start: 20121112, end: 20121113
  10. MEBEVERINE HYDROCHLORIDE [Concomitant]
     Dates: start: 20120919
  11. MORPHINE SULPHATE [Concomitant]
     Dates: start: 20121203

REACTIONS (9)
  - Convulsion [Unknown]
  - Pruritus [Recovered/Resolved]
  - Emotional disorder [Recovered/Resolved]
  - Headache [Recovered/Resolved]
  - Pain [Recovered/Resolved]
  - Migraine [Recovered/Resolved]
  - Negativism [Unknown]
  - Rash [Unknown]
  - Drug ineffective [Unknown]
